FAERS Safety Report 9171619 (Version 1)
Quarter: 2013Q1

REPORT INFORMATION
  Report Type: Spontaneous
  Country: US (occurrence: US)
  Receive Date: 20130319
  Receipt Date: 20130319
  Transmission Date: 20140127
  Serious: No
  Sender: FDA-Public Use
  Company Number: US-BAYER-2013-034292

PATIENT
  Age: 91 Year
  Sex: Female
  Weight: 73 kg

DRUGS (3)
  1. ALEVE [Suspect]
     Indication: BACK PAIN
     Dosage: 1 DF, PRN
     Route: 048
  2. BAYER ASPIRIN REGIMEN ADULT LOW STRENGTH [Concomitant]
     Indication: ISCHAEMIC HEART DISEASE PROPHYLAXIS
     Dosage: 1 DF, QD
     Route: 048
  3. 6 OR 8 OTHER MEDICATIONS [Concomitant]

REACTIONS (2)
  - Drug ineffective [None]
  - Product quality issue [None]
